FAERS Safety Report 8544401-9 (Version None)
Quarter: 2012Q3

REPORT INFORMATION
  Report Type: 
  Country: None (occurrence: None)
  Receive Date: 20120727
  Receipt Date: 20120724
  Transmission Date: 20120928
  Serious: Yes (Other)
  Sender: FDA-Public Use
  Company Number: US-PFIZER INC-2012137675

PATIENT
  Sex: Female
  Weight: 61 kg

DRUGS (1)
  1. PRISTIQ [Suspect]
     Indication: MAJOR DEPRESSION
     Dosage: 100 MG, 1X/DAY
     Route: 048
     Dates: start: 20120401

REACTIONS (5)
  - COELIAC DISEASE [None]
  - ABDOMINAL DISTENSION [None]
  - PRODUCT FORMULATION ISSUE [None]
  - GASTRIC DISORDER [None]
  - FLATULENCE [None]
